FAERS Safety Report 9331187 (Version 1)
Quarter: 2013Q2

REPORT INFORMATION
  Report Type: Spontaneous
  Country: ES (occurrence: ES)
  Receive Date: 20130605
  Receipt Date: 20130605
  Transmission Date: 20140414
  Serious: Yes (Death, Other)
  Sender: FDA-Public Use
  Company Number: ES-JNJFOC-20130515271

PATIENT
  Sex: 0

DRUGS (30)
  1. DOXORUBICIN [Suspect]
     Indication: BURKITT^S LEUKAEMIA
     Dosage: CYCLE B 32-33 CYCLES PER DAY, 15 MINUTE
     Route: 042
  2. DOXORUBICIN [Suspect]
     Indication: BURKITT^S LYMPHOMA
     Dosage: CYCLE B 32-33 CYCLES PER DAY, 15 MINUTE
     Route: 042
  3. CYCLOPHOSPHAMIDE [Suspect]
     Indication: BURKITT^S LEUKAEMIA
     Dosage: PREPHASE CYCLES 1-5 PER DAY, 1 HOUR
     Route: 042
  4. CYCLOPHOSPHAMIDE [Suspect]
     Indication: BURKITT^S LYMPHOMA
     Dosage: PREPHASE CYCLES 1-5 PER DAY, 1 HOUR
     Route: 042
  5. PREDNISONE [Suspect]
     Indication: BURKITT^S LEUKAEMIA
     Dosage: PREPHASE CYCLES 1-5 PER DAY
     Route: 040
  6. PREDNISONE [Suspect]
     Indication: BURKITT^S LYMPHOMA
     Dosage: PREPHASE CYCLES 1-5 PER DAY
     Route: 040
  7. RITUXIMAB [Suspect]
     Indication: BURKITT^S LEUKAEMIA
     Dosage: CYCLE A 7 CYCLES PER DAY??CYCLE B 28 CYCLES PER DAY??CYCLE C 49 CYCLES PER DAY
     Route: 042
  8. RITUXIMAB [Suspect]
     Indication: BURKITT^S LYMPHOMA
     Dosage: CYCLE A 7 CYCLES PER DAY??CYCLE B 28 CYCLES PER DAY??CYCLE C 49 CYCLES PER DAY
     Route: 042
  9. VINCRISTINE [Suspect]
     Indication: BURKITT^S LEUKAEMIA
     Dosage: CYCLE A 8 CYCLES PER DAY??CYCLE B 29 CYCLES PER DAY
     Route: 040
  10. VINCRISTINE [Suspect]
     Indication: BURKITT^S LYMPHOMA
     Dosage: CYCLE A 8 CYCLES PER DAY??CYCLE B 29 CYCLES PER DAY
     Route: 040
  11. METHOTREXATE [Suspect]
     Indication: BURKITT^S LEUKAEMIA
     Route: 042
  12. METHOTREXATE [Suspect]
     Indication: BURKITT^S LEUKAEMIA
     Route: 042
  13. IPHOSPHAMIDE [Suspect]
     Indication: BURKITT^S LEUKAEMIA
     Dosage: CYCLE A 8-12 CYCLES PER DAY
     Route: 042
  14. IPHOSPHAMIDE [Suspect]
     Indication: BURKITT^S LEUKAEMIA
     Dosage: CYCLE A 8-12 CYCLES PER DAY
     Route: 042
  15. DEXAMETHASONE [Suspect]
     Indication: BURKITT^S LEUKAEMIA
     Dosage: CYCLE A 8-12 CYCLES PER DAY??CYCLE B 29-33 CYCLES PER DAY??CYCLE C 50-54 CYCLES PER DAY
     Route: 040
  16. DEXAMETHASONE [Suspect]
     Indication: BURKITT^S LYMPHOMA
     Dosage: CYCLE A 8-12 CYCLES PER DAY??CYCLE B 29-33 CYCLES PER DAY??CYCLE C 50-54 CYCLES PER DAY
     Route: 040
  17. TENIPOSIDE [Suspect]
     Indication: BURKITT^S LEUKAEMIA
     Dosage: CYCLE A 11-12 CYCLES PER DAY
     Route: 042
  18. TENIPOSIDE [Suspect]
     Indication: BURKITT^S LYMPHOMA
     Dosage: CYCLE A 11-12 CYCLES PER DAY
     Route: 042
  19. CYTARABINE [Suspect]
     Indication: BURKITT^S LEUKAEMIA
     Dosage: (1H)/12HCYCLE A 11-12 CYCLES PER DAY
     Route: 042
  20. CYTARABINE [Suspect]
     Indication: BURKITT^S LEUKAEMIA
     Dosage: (3H)/12H??CYCLE C 54 CYCLES PER DAY
     Route: 042
  21. CYTARABINE [Suspect]
     Indication: BURKITT^S LYMPHOMA
     Dosage: (3H)/12H??CYCLE C 54 CYCLES PER DAY
     Route: 042
  22. CYTARABINE [Suspect]
     Indication: BURKITT^S LYMPHOMA
     Dosage: (1H)/12HCYCLE A 11-12 CYCLES PER DAY
     Route: 042
  23. VINDESINE [Suspect]
     Indication: BURKITT^S LEUKAEMIA
     Dosage: (MAXIMUM 5 MG)??CYCLE C 50 CYCLES PER DAY
     Route: 040
  24. VINDESINE [Suspect]
     Indication: BURKITT^S LYMPHOMA
     Dosage: (MAXIMUM 5 MG)??CYCLE C 50 CYCLES PER DAY
     Route: 040
  25. ETOPOSIDE [Suspect]
     Indication: BURKITT^S LEUKAEMIA
     Dosage: (MAXIMUM 5 MG)??CYCLE C 53-54 CYCLES PER DAY
     Route: 042
  26. ETOPOSIDE [Suspect]
     Indication: BURKITT^S LYMPHOMA
     Dosage: (MAXIMUM 5 MG)??CYCLE C 53-54 CYCLES PER DAY
     Route: 042
  27. METHOTREXATE [Suspect]
     Indication: NERVOUS SYSTEM DISORDER
     Dosage: CYCLE A 8 CYCLES/ DAY: B 29 CYCLES/DAY??CENTRAL NERVOUS SYSTEM PROPHYLAXIS 1-8-12-29-33 CYCLES/DAY
     Route: 037
  28. CYTARABINE [Suspect]
     Indication: NERVOUS SYSTEM DISORDER
     Dosage: (1H)/12H
     Route: 037
  29. DEXAMETHASONE [Suspect]
     Indication: NERVOUS SYSTEM DISORDER
     Route: 037
  30. GRANULOCYTE COLONY-STIMULATING FACTOR [Concomitant]
     Indication: NEUTROPHIL COUNT DECREASED
     Route: 065

REACTIONS (15)
  - Pseudomonas infection [Fatal]
  - Aspergillus infection [Fatal]
  - Death [Fatal]
  - Infection [Fatal]
  - Neutropenia [Unknown]
  - Bone marrow failure [Unknown]
  - Septic shock [Unknown]
  - Mucosal inflammation [Unknown]
  - Toxicity to various agents [Unknown]
  - Hepatotoxicity [Unknown]
  - Neurotoxicity [Unknown]
  - Thrombocytopenia [Unknown]
  - Adverse event [Unknown]
  - Pneumonia [Unknown]
  - Burkitt^s lymphoma recurrent [Unknown]
